FAERS Safety Report 4985581-1 (Version None)
Quarter: 2006Q2

REPORT INFORMATION
  Report Type: 
  Country: None (occurrence: None)
  Receive Date: 20060428
  Receipt Date: 20050912
  Transmission Date: 20061013
  Serious: No
  Sender: FDA-Public Use
  Company Number: US-GLAXOSMITHKLINE-A0573864A

PATIENT
  Age: 46 Year
  Sex: Male

DRUGS (3)
  1. SEREVENT [Suspect]
     Indication: ASTHMA
     Route: 055
  2. ZYRTEC [Concomitant]
  3. NASONEX [Concomitant]

REACTIONS (1)
  - DRUG INEFFECTIVE [None]
